FAERS Safety Report 22241140 (Version 1)
Quarter: 2023Q2

REPORT INFORMATION
  Report Type: Spontaneous
  Country: IT (occurrence: IT)
  Receive Date: 20230421
  Receipt Date: 20230421
  Transmission Date: 20230721
  Serious: Yes (Other)
  Sender: FDA-Public Use
  Company Number: None

PATIENT
  Age: 83 Year
  Sex: Male

DRUGS (1)
  1. CEFTRIAXONE [Suspect]
     Active Substance: CEFTRIAXONE
     Indication: Productive cough
     Dosage: 1 G, Q24H (1 GR/3,5 ML) (START THERAPY WITHOUT CONSULTING YOUR DOCTOR)
     Route: 030
     Dates: start: 20221229, end: 20221231

REACTIONS (3)
  - Intentional product misuse [Recovered/Resolved]
  - Lip oedema [Recovered/Resolved]
  - Pruritus [Recovered/Resolved]

NARRATIVE: CASE EVENT DATE: 20221231
